FAERS Safety Report 8445108-9 (Version None)
Quarter: 2012Q2

REPORT INFORMATION
  Report Type: 
  Country: None (occurrence: None)
  Receive Date: 20120618
  Receipt Date: 20120608
  Transmission Date: 20120825
  Serious: Yes (Other)
  Sender: FDA-Public Use
  Company Number: US-PFIZER INC-2010034452

PATIENT
  Sex: Female

DRUGS (19)
  1. MAGNESIUM [Concomitant]
     Indication: HYPOKALAEMIA
     Dosage: UNK
     Route: 042
     Dates: start: 20080807
  2. FENTANYL [Concomitant]
     Dosage: 100 MG, UNK
     Route: 042
     Dates: start: 20080810
  3. NEXIUM [Concomitant]
     Dosage: 40 MG, UNK
     Route: 048
     Dates: start: 20080810, end: 20080910
  4. ZOLOFT [Concomitant]
     Dosage: 100MG ONE TABLET DAILY
     Route: 048
     Dates: start: 20080806
  5. GEODON [Concomitant]
     Dosage: 80 MG, 4X/DAY
     Dates: start: 20080806
  6. REGLAN [Concomitant]
     Dosage: 10 MG, 4X/DAY
     Route: 042
     Dates: start: 20080810
  7. VICODIN [Concomitant]
     Dosage: 500 MG, 4X/DAY (EVERY SIX HOURS)
     Route: 048
     Dates: start: 20080811, end: 20080818
  8. DILANTIN [Suspect]
     Dosage: 300MG EVERY BED TIME
     Route: 042
     Dates: start: 20080807
  9. IBUPROFEN [Concomitant]
     Dosage: 800 MG, 1X/DAY
     Route: 048
     Dates: start: 20080806
  10. PHENYTOIN [Concomitant]
     Dosage: 300 MG, 1X/DAY (EVERY BED TIME)
     Route: 048
     Dates: start: 20080807, end: 20080907
  11. AMBIEN [Concomitant]
     Dosage: 5 MG, UNK
     Route: 048
     Dates: start: 20080811, end: 20080818
  12. DILANTIN [Suspect]
     Indication: CONVULSION
     Dosage: ONCE IN MORNING
     Route: 042
     Dates: start: 20080807
  13. DILANTIN [Suspect]
     Dosage: EVERY BED TIME
     Route: 048
     Dates: start: 20080807
  14. MORPHINE [Concomitant]
     Indication: PAIN
     Dosage: 60 MG, UNK
     Route: 042
     Dates: start: 20080806
  15. ATIVAN [Concomitant]
     Dosage: 2 MG DAILY
     Route: 042
     Dates: start: 20080809
  16. ACETAMINOPHEN [Concomitant]
     Dosage: 650 MG, UNK
     Dates: start: 20080810, end: 20080909
  17. METOCLOPRAMIDE [Concomitant]
     Dosage: 10 MG, UNK
     Route: 042
     Dates: start: 20080807, end: 20080907
  18. CLONAZEPAM [Concomitant]
     Dosage: UNK
     Dates: start: 20080809
  19. DEPAKOTE [Concomitant]
     Dosage: 500 MG, 2X/DAY
     Route: 048
     Dates: start: 20080812, end: 20080911

REACTIONS (1)
  - STEVENS-JOHNSON SYNDROME [None]
